FAERS Safety Report 13572103 (Version 1)
Quarter: 2017Q2

REPORT INFORMATION
  Report Type: Spontaneous
  Country: GB (occurrence: GB)
  Receive Date: 20170523
  Receipt Date: 20170523
  Transmission Date: 20170830
  Serious: Yes (Other)
  Sender: FDA-Public Use
  Company Number: GB-TORRENT-00015285

PATIENT
  Age: 79 Year
  Sex: Male
  Weight: 74 kg

DRUGS (11)
  1. CANDESARTAN. [Concomitant]
     Active Substance: CANDESARTAN
  2. LORAZEPAM. [Concomitant]
     Active Substance: LORAZEPAM
  3. MIRTAZAPINE. [Concomitant]
     Active Substance: MIRTAZAPINE
  4. RISPERIDONE. [Suspect]
     Active Substance: RISPERIDONE
  5. ALLOPURINOL. [Concomitant]
     Active Substance: ALLOPURINOL
  6. DONEPEZIL. [Concomitant]
     Active Substance: DONEPEZIL
  7. ROSUVASTATIN. [Concomitant]
     Active Substance: ROSUVASTATIN
  8. WARFARIN [Concomitant]
     Active Substance: WARFARIN
  9. LACTULOSE. [Concomitant]
     Active Substance: LACTULOSE
  10. BISOPROLOL [Concomitant]
     Active Substance: BISOPROLOL
  11. MELATONIN [Concomitant]
     Active Substance: MELATONIN

REACTIONS (1)
  - Pleurothotonus [Recovered/Resolved]

NARRATIVE: CASE EVENT DATE: 20170417
